FAERS Safety Report 14905778 (Version 1)
Quarter: 2018Q2

REPORT INFORMATION
  Report Type: Spontaneous
  Country: US (occurrence: US)
  Receive Date: 20180517
  Receipt Date: 20180517
  Transmission Date: 20180711
  Serious: No
  Sender: FDA-Public Use
  Company Number: US-SA-2018SA041559

PATIENT
  Sex: Male

DRUGS (4)
  1. NOVOLOG [Suspect]
     Active Substance: INSULIN ASPART
     Dosage: DOSE:16 UNIT(S)
     Route: 065
     Dates: start: 20170929, end: 20170929
  2. NOVOLOG [Suspect]
     Active Substance: INSULIN ASPART
     Route: 065
     Dates: start: 20170930
  3. LANTUS [Suspect]
     Active Substance: INSULIN GLARGINE
     Dosage: DOSE; 16-20 U AND SOMETIME 25U
     Route: 051
  4. NOVOLOG [Suspect]
     Active Substance: INSULIN ASPART
     Dosage: DOSE: 6-8 UNITS
     Route: 065

REACTIONS (2)
  - Blood glucose increased [Unknown]
  - Wrong drug administered [Unknown]

NARRATIVE: CASE EVENT DATE: 20170929
